FAERS Safety Report 6022621-5 (Version None)
Quarter: 2008Q4

REPORT INFORMATION
  Report Type: 
  Country: None (occurrence: None)
  Receive Date: 20081223
  Receipt Date: 20081204
  Transmission Date: 20090506
  Serious: Yes (Other)
  Sender: FDA-Public Use
  Company Number: URSO-2008-169 FUP #1

PATIENT
  Age: 65 Year
  Sex: Female

DRUGS (2)
  1. URSO 250 [Suspect]
     Dosage: ORAL
     Route: 048
     Dates: start: 20070301, end: 20070401
  2. LAMISIL [Suspect]

REACTIONS (1)
  - LIVER DISORDER [None]
